FAERS Safety Report 24285921 (Version 2)
Quarter: 2024Q3

REPORT INFORMATION
  Report Type: Report from Study
  Country: PY (occurrence: PY)
  Receive Date: 20240905
  Receipt Date: 20240926
  Transmission Date: 20241017
  Serious: Yes (Hospitalization)
  Sender: ROCHE
  Company Number: PY-ROCHE-10000073927

PATIENT
  Age: 2 Year
  Sex: Female
  Weight: 11.5 kg

DRUGS (2)
  1. EVRYSDI [Suspect]
     Active Substance: RISDIPLAM
     Indication: Spinal muscular atrophy
     Dosage: EVRYSDI (RIDSIPLAM) 60MG/80ML?PHARMACEUTICAL FORM / PRESENTATION: RECONSTITUTED POWDER?ADMINISTRATIO
     Route: 050
     Dates: start: 20220811
  2. CEFTAZIDIME [Concomitant]
     Active Substance: CEFTAZIDIME

REACTIONS (5)
  - Pyrexia [Recovered/Resolved]
  - Pneumonia [Recovered/Resolved]
  - Pseudomonas infection [Recovered/Resolved]
  - Gastritis erosive [Recovered/Resolved]
  - Weight decreased [Unknown]

NARRATIVE: CASE EVENT DATE: 20240824
